APPROVED DRUG PRODUCT: GUAIFENESIN AND PSEUDOEPHEDRINE HYDROCHLORIDE
Active Ingredient: GUAIFENESIN; PSEUDOEPHEDRINE HYDROCHLORIDE
Strength: 1.2GM;120MG
Dosage Form/Route: TABLET, EXTENDED RELEASE;ORAL
Application: A208369 | Product #002
Applicant: DR REDDYS LABORATORIES LTD
Approved: Dec 29, 2017 | RLD: No | RS: No | Type: OTC